FAERS Safety Report 8117402-2 (Version None)
Quarter: 2012Q1

REPORT INFORMATION
  Report Type: 
  Country: None (occurrence: None)
  Receive Date: 20120206
  Receipt Date: 20120126
  Transmission Date: 20120608
  Serious: Yes (Other)
  Sender: FDA-Public Use
  Company Number: FR-BRISTOL-MYERS SQUIBB COMPANY-16375958

PATIENT
  Age: 6 Decade
  Sex: Male

DRUGS (2)
  1. BARACLUDE [Suspect]
     Indication: HEPATITIS B
     Dosage: 1DF=1 TABLET
  2. VITAMIN D [Concomitant]
     Indication: VITAMIN D DEFICIENCY

REACTIONS (1)
  - RENAL TUBULAR DISORDER [None]
